FAERS Safety Report 19719811 (Version 2)
Quarter: 2021Q3

REPORT INFORMATION
  Report Type: Spontaneous
  Country: US (occurrence: US)
  Receive Date: 20210819
  Receipt Date: 20210819
  Transmission Date: 20211014
  Serious: Yes (Death, Other)
  Sender: FDA-Public Use
  Company Number: US-CELGENEUS-USA-20210805462

PATIENT
  Age: 61 Year
  Sex: Female

DRUGS (1)
  1. POMALYST [Suspect]
     Active Substance: POMALIDOMIDE
     Indication: PLASMA CELL MYELOMA
     Dosage: 2 MILLIGRAM
     Route: 048
     Dates: start: 20210616, end: 20210802

REACTIONS (5)
  - Infection [Unknown]
  - Thrombocytopenia [Unknown]
  - Death [Fatal]
  - Dialysis hypotension [Unknown]
  - End stage renal disease [Unknown]

NARRATIVE: CASE EVENT DATE: 202107
